FAERS Safety Report 5244014-0 (Version None)
Quarter: 2007Q1

REPORT INFORMATION
  Report Type: 
  Country: None (occurrence: None)
  Receive Date: 20070222
  Receipt Date: 20070212
  Transmission Date: 20070707
  Serious: Yes (Other)
  Sender: FDA-Public Use
  Company Number: MX-JNJFOC-20070204270

PATIENT
  Age: 31 Year
  Sex: Female
  Weight: 54 kg

DRUGS (4)
  1. ORTHO EVRA [Suspect]
     Route: 062
     Dates: end: 20070114
  2. ORTHO EVRA [Suspect]
     Indication: CONTRACEPTION
     Route: 062
     Dates: end: 20070114
  3. CARBAMAZEPINE [Concomitant]
     Indication: MIGRAINE
     Route: 048
     Dates: start: 20061125, end: 20061215
  4. LAMOTRIGINE [Concomitant]
     Indication: MIGRAINE
     Route: 048
     Dates: start: 20061125, end: 20061212

REACTIONS (4)
  - ABORTION SPONTANEOUS [None]
  - DRUG EXPOSURE DURING PREGNANCY [None]
  - UNINTENDED PREGNANCY [None]
  - VAGINAL HAEMORRHAGE [None]
